FAERS Safety Report 7704059-5 (Version None)
Quarter: 2011Q3

REPORT INFORMATION
  Report Type: 
  Country: None (occurrence: None)
  Receive Date: 20110823
  Receipt Date: 20110818
  Transmission Date: 20111222
  Serious: Yes (Other)
  Sender: FDA-Public Use
  Company Number: US-SHIRE-ALL1-2011-02829

PATIENT
  Sex: Male
  Weight: 81.633 kg

DRUGS (11)
  1. TESTIM [Concomitant]
     Indication: BLOOD TESTOSTERONE DECREASED
     Dosage: UNK, UNKNOWN
     Route: 061
     Dates: start: 20110607
  2. PRASTERONE [Concomitant]
     Indication: HORMONE REPLACEMENT THERAPY
     Dosage: UNK, UNKNOWN
     Route: 065
     Dates: start: 20110701
  3. SIMVASTATIN [Concomitant]
     Indication: BLOOD CHOLESTEROL INCREASED
     Dosage: UNK, 1X/DAY:QD
     Route: 048
  4. MAGNESIUM TAURATE [Concomitant]
     Indication: PRODUCT USED FOR UNKNOWN INDICATION
     Dosage: UNK, UNKNOWN
     Route: 048
     Dates: start: 20110101
  5. LISINOPRIL [Concomitant]
     Indication: HYPERTENSION
     Dosage: 5 MG, 1X/DAY:QD
     Route: 048
  6. SERENE                             /00243802/ [Concomitant]
     Indication: PRODUCT USED FOR UNKNOWN INDICATION
     Dosage: UNK, UNKNOWN
     Route: 048
     Dates: start: 20110101
  7. UNSPECIFIED THYROID MEDICATION [Concomitant]
     Indication: THYROID DISORDER
     Dosage: UNK, 1X/DAY:QD
     Route: 048
     Dates: start: 20110607
  8. FINASTERIDE [Concomitant]
     Indication: PRODUCT USED FOR UNKNOWN INDICATION
     Dosage: 5 MG, 1X/DAY:QD
     Route: 048
  9. AMPHETAMINE AND DEXTROAMPHETAMINE SALTS [Suspect]
     Indication: PRODUCT USED FOR UNKNOWN INDICATION
     Dosage: 60 MG (TWO 30 MG), 2X/DAY:BID (IN MORNING AND AT 2 P.M.)
     Route: 048
     Dates: start: 20110630
  10. CLONIDINE [Suspect]
     Indication: HEART RATE INCREASED
     Dosage: UNK, AS REQ'D
     Route: 048
  11. CLONIDINE [Suspect]
     Dosage: UNK
     Route: 048
     Dates: start: 20110701, end: 20110701

REACTIONS (7)
  - DYSARTHRIA [None]
  - DYSPHEMIA [None]
  - LOSS OF CONSCIOUSNESS [None]
  - OVERDOSE [None]
  - BLOOD PRESSURE DECREASED [None]
  - MEMORY IMPAIRMENT [None]
  - HEART RATE DECREASED [None]
